FAERS Safety Report 8229382-X (Version None)
Quarter: 2012Q1

REPORT INFORMATION
  Report Type: 
  Country: None (occurrence: None)
  Receive Date: 20120322
  Receipt Date: 20120319
  Transmission Date: 20120608
  Serious: Yes (Other)
  Sender: FDA-Public Use
  Company Number: US-ROXANE LABORATORIES, INC.-2012-RO-00885RO

PATIENT
  Sex: Female

DRUGS (2)
  1. DIAZEPAM [Suspect]
     Route: 048
  2. RISPERIDONE [Suspect]

REACTIONS (7)
  - DROOLING [None]
  - HEART RATE INCREASED [None]
  - DYSKINESIA [None]
  - VIITH NERVE PARALYSIS [None]
  - DYSTONIA [None]
  - BLOOD PRESSURE INCREASED [None]
  - APHASIA [None]
